FAERS Safety Report 7524651-0 (Version None)
Quarter: 2011Q2

REPORT INFORMATION
  Report Type: 
  Country: None (occurrence: None)
  Receive Date: 20110606
  Receipt Date: 20110526
  Transmission Date: 20111010
  Serious: Yes (Hospitalization)
  Sender: FDA-Public Use
  Company Number: IT-JNJFOC-20110511962

PATIENT
  Age: 37 Year
  Sex: Male

DRUGS (5)
  1. DOXYCYCLINE HYCLATE [Suspect]
     Indication: STAPHYLOCOCCAL INFECTION
     Route: 048
     Dates: start: 20110305, end: 20110311
  2. LEVOFLOXACIN [Suspect]
     Indication: STAPHYLOCOCCAL INFECTION
     Route: 042
     Dates: start: 20110305, end: 20110311
  3. LANSOPRAZOLE [Suspect]
     Indication: PROPHYLAXIS AGAINST GASTROINTESTINAL ULCER
     Route: 048
     Dates: start: 20110224, end: 20110311
  4. ENOXAPARIN SODIUM [Concomitant]
     Indication: THROMBOSIS PROPHYLAXIS
     Route: 065
     Dates: start: 20110302, end: 20110325
  5. HALCION [Suspect]
     Indication: SEDATION
     Route: 048
     Dates: start: 20110301, end: 20110310

REACTIONS (2)
  - RASH [None]
  - CONDITION AGGRAVATED [None]
